FAERS Safety Report 23940837 (Version 2)
Quarter: 2024Q2

REPORT INFORMATION
  Report Type: Spontaneous
  Country: KW (occurrence: KW)
  Receive Date: 20240605
  Receipt Date: 20240614
  Transmission Date: 20240715
  Serious: Yes (Hospitalization)
  Sender: FDA-Public Use
  Company Number: KW-ULTRAGENYX PHARMACEUTICAL INC.-KW-UGX-24-01043

PATIENT
  Sex: Female
  Weight: 32 kg

DRUGS (4)
  1. DOJOLVI [Suspect]
     Active Substance: TRIHEPTANOIN
     Indication: Very long-chain acyl-coenzyme A dehydrogenase deficiency
     Dosage: 52 MILLILITER/DAY 20% OF DCI, QID, MIXED WITH MEALS
     Route: 048
     Dates: start: 20140420
  2. DOJOLVI [Suspect]
     Active Substance: TRIHEPTANOIN
     Dosage: UNK (APPROXIMATELY)
     Route: 048
     Dates: start: 20240410
  3. DOJOLVI [Suspect]
     Active Substance: TRIHEPTANOIN
     Dosage: 52 MILLILITER/DAY 20% OF DCI,6 TIMES/ DAY, MIXED WITH MEALS
     Route: 048
     Dates: end: 20240527
  4. ZESTRIL [Concomitant]
     Active Substance: LISINOPRIL
     Indication: Cardiomyopathy
     Dosage: 1.25 MILLIGRAM, QD

REACTIONS (4)
  - Vomiting [Recovered/Resolved]
  - Blood creatine phosphokinase increased [Recovered/Resolved]
  - Abdominal pain [Recovered/Resolved]
  - Adverse event [Unknown]

NARRATIVE: CASE EVENT DATE: 20240101
